FAERS Safety Report 7788747-0 (Version None)
Quarter: 2011Q3

REPORT INFORMATION
  Report Type: 
  Country: None (occurrence: None)
  Receive Date: 20110930
  Receipt Date: 20110927
  Transmission Date: 20111222
  Serious: Yes (Hospitalization)
  Sender: FDA-Public Use
  Company Number: JP-PFIZER INC-2011230158

PATIENT
  Age: 63 Year
  Sex: Male

DRUGS (6)
  1. TIZANIDINE HCL [Concomitant]
     Route: 048
  2. SELBEX [Concomitant]
     Route: 048
  3. FAMOTIDINE [Concomitant]
     Route: 048
  4. LOXONIN [Concomitant]
     Route: 048
  5. URSO 250 [Concomitant]
     Route: 048
  6. LYRICA [Suspect]
     Dosage: 75 MG, DAILY AS NEEDED
     Route: 048
     Dates: start: 20110819

REACTIONS (2)
  - ROAD TRAFFIC ACCIDENT [None]
  - LOSS OF CONSCIOUSNESS [None]
